FAERS Safety Report 10035692 (Version 2)
Quarter: 2014Q2

REPORT INFORMATION
  Report Type: Spontaneous
  Country: US (occurrence: US)
  Receive Date: 20140325
  Receipt Date: 20140630
  Transmission Date: 20141212
  Serious: Yes (Hospitalization)
  Sender: FDA-Public Use
  Company Number: US-GLAXOSMITHKLINE-A1065596A

PATIENT
  Age: 52 Year
  Sex: Female

DRUGS (4)
  1. ADVAIR [Suspect]
     Indication: CHRONIC OBSTRUCTIVE PULMONARY DISEASE
     Dosage: 1PUFF TWICE PER DAY
     Route: 055
     Dates: start: 2013
  2. WATER PILL [Concomitant]
  3. UNKNOWN DRUG FOR ANXIETY [Concomitant]
  4. FUROSEMIDE [Concomitant]

REACTIONS (2)
  - Dehydration [Recovering/Resolving]
  - Alcohol withdrawal syndrome [Unknown]
